FAERS Safety Report 7749053-3 (Version None)
Quarter: 2011Q3

REPORT INFORMATION
  Report Type: 
  Country: None (occurrence: None)
  Receive Date: 20110825
  Receipt Date: 20110613
  Transmission Date: 20111222
  Serious: No
  Sender: FDA-Public Use
  Company Number: 330113

PATIENT
  Age: 71 Year
  Sex: Male

DRUGS (2)
  1. GLUCOTROL XL [Concomitant]
  2. VICTOZA [Suspect]
     Indication: TYPE 2 DIABETES MELLITUS
     Dosage: 0.6MG, SUBCUTANEOUS
     Route: 058
     Dates: start: 20110601, end: 20110601

REACTIONS (1)
  - ABDOMINAL PAIN UPPER [None]
